FAERS Safety Report 8959999 (Version 1)
Quarter: 2012Q4

REPORT INFORMATION
  Report Type: 
  Country: FR (occurrence: FR)
  Receive Date: 20121212
  Receipt Date: 20121212
  Transmission Date: 20130627
  Serious: Yes (Hospitalization)
  Sender: FDA-Public Use
  Company Number: PHHY2012FR111092

PATIENT
  Age: 57 Year
  Sex: Female

DRUGS (10)
  1. ZARZIO [Suspect]
     Indication: PROPHYLAXIS
     Route: 058
     Dates: start: 20120917, end: 20120921
  2. 5 FLUORO URACIL [Concomitant]
     Indication: BREAST CANCER FEMALE
     Route: 042
     Dates: start: 20120822, end: 20121010
  3. EPIRUBICIN [Concomitant]
     Indication: BREAST CANCER FEMALE
     Dosage: UNK
     Route: 042
     Dates: start: 20120822, end: 20121010
  4. ENDOXAN [Concomitant]
     Indication: BREAST CANCER FEMALE
     Route: 042
     Dates: start: 20120822, end: 20121010
  5. ZOCOR [Concomitant]
  6. ECAZIDE [Concomitant]
  7. INIPOMP [Concomitant]
  8. LEVOTHYROX [Concomitant]
  9. LEXOMIL [Concomitant]
  10. EFFEXOR [Concomitant]

REACTIONS (4)
  - Bacterial infection [Recovered/Resolved]
  - Diarrhoea [Recovered/Resolved]
  - Bone marrow failure [Recovering/Resolving]
  - Chills [Unknown]
